FAERS Safety Report 19845953 (Version 1)
Quarter: 2021Q3

REPORT INFORMATION
  Report Type: Spontaneous
  Country: US (occurrence: US)
  Receive Date: 20210915
  Receipt Date: 20210915
  Transmission Date: 20211014
  Serious: Yes (Hospitalization)
  Sender: FDA-Public Use
  Company Number: None

PATIENT
  Sex: Female

DRUGS (4)
  1. PULMOZYME [Suspect]
     Active Substance: DORNASE ALFA
     Indication: CYSTIC FIBROSIS
     Dosage: ?          OTHER ROUTE:NEBULIZER?
     Dates: start: 20170302
  2. SMZ?TMP TAB [Concomitant]
  3. TOBRAMYCIN. [Concomitant]
     Active Substance: TOBRAMYCIN
  4. TOBI NEB [Concomitant]

REACTIONS (1)
  - Lung disorder [None]
